FAERS Safety Report 13627544 (Version 1)
Quarter: 2017Q2

REPORT INFORMATION
  Report Type: Spontaneous
  Country: US (occurrence: US)
  Receive Date: 20170608
  Receipt Date: 20170608
  Transmission Date: 20170830
  Serious: Yes (Hospitalization)
  Sender: FDA-Public Use
  Company Number: None

PATIENT
  Age: 63 Year
  Sex: Male

DRUGS (11)
  1. EYE DROPS [Concomitant]
     Active Substance: UNSPECIFIED INGREDIENT
  2. COQ10 [Concomitant]
     Active Substance: UBIDECARENONE
  3. REPATHA [Suspect]
     Active Substance: EVOLOCUMAB
     Indication: TYPE V HYPERLIPIDAEMIA
     Route: 058
     Dates: start: 20170221
  4. ALREX [Concomitant]
     Active Substance: LOTEPREDNOL ETABONATE
  5. LOVAZA [Concomitant]
     Active Substance: OMEGA-3-ACID ETHYL ESTERS
  6. ISOSORB [Concomitant]
  7. TRIAMTERENE. [Concomitant]
     Active Substance: TRIAMTERENE
  8. EFFIENT [Concomitant]
     Active Substance: PRASUGREL HYDROCHLORIDE
  9. VALIUM [Concomitant]
     Active Substance: DIAZEPAM
  10. ASPIRIN. [Concomitant]
     Active Substance: ASPIRIN
  11. NITROGLYCER [Concomitant]

REACTIONS (1)
  - Cardiac disorder [None]
